FAERS Safety Report 20546933 (Version 1)
Quarter: 2022Q1

REPORT INFORMATION
  Report Type: Spontaneous
  Country: US (occurrence: None)
  Receive Date: 20220303
  Receipt Date: 20220303
  Transmission Date: 20220423
  Serious: Yes (Hospitalization)
  Sender: FDA-Public Use
  Company Number: None

PATIENT
  Sex: Female

DRUGS (1)
  1. IMATINIB [Suspect]
     Active Substance: IMATINIB
     Indication: Chronic myeloid leukaemia
     Dosage: FREQUENCY : DAILY;?
     Route: 048
     Dates: start: 20190401

REACTIONS (10)
  - Fall [None]
  - Upper limb fracture [None]
  - COVID-19 [None]
  - Pneumonia [None]
  - Hypotension [None]
  - Haemoglobin decreased [None]
  - Blood potassium decreased [None]
  - Diarrhoea [None]
  - Constipation [None]
  - Pain [None]
